FAERS Safety Report 6714468-9 (Version None)
Quarter: 2010Q2

REPORT INFORMATION
  Report Type: 
  Country: None (occurrence: None)
  Receive Date: 20100506
  Receipt Date: 20100426
  Transmission Date: 20101027
  Serious: Yes (Hospitalization)
  Sender: FDA-Public Use
  Company Number: IN-WATSON-2010-05749

PATIENT
  Age: 65 Year
  Sex: Female

DRUGS (3)
  1. CHLORPROMAZINE HCL [Suspect]
     Indication: OVERDOSE
     Dosage: 1200 MG SINGLE
     Route: 048
  2. HALOPERIDOL (WATSON LABORATORIES) [Suspect]
     Indication: OVERDOSE
     Dosage: 80 MG SINGLE
     Route: 048
  3. TRIHEXYPHENIDYL HYDROCHLORIDE (WATSON LABORATORIES) [Suspect]
     Indication: OVERDOSE
     Dosage: 10 MG SINGLE
     Route: 048

REACTIONS (2)
  - MULTIPLE DRUG OVERDOSE [None]
  - MYOCARDITIS [None]
